FAERS Safety Report 4554957-9 (Version None)
Quarter: 2004Q4

REPORT INFORMATION
  Report Type: 
  Country: None (occurrence: None)
  Receive Date: 20041222
  Receipt Date: 20041019
  Transmission Date: 20050328
  Serious: Yes (Other)
  Sender: FDA-Public Use
  Company Number: 209780

PATIENT
  Age: 61 Year
  Sex: Female
  Weight: 60.8 kg

DRUGS (4)
  1. AVASTIN [Suspect]
     Indication: COLON CANCER METASTATIC
     Dosage: 286 MG, Q2W, INTRAVENOUS
     Route: 042
     Dates: start: 20040720
  2. FLUOROURACIL [Concomitant]
  3. LEUCOVORIN CALCIUM [Concomitant]
  4. CAMPTOSAR [Concomitant]

REACTIONS (1)
  - JUGULAR VEIN THROMBOSIS [None]
